FAERS Safety Report 7402165-6 (Version None)
Quarter: 2011Q1

REPORT INFORMATION
  Report Type: 
  Country: None (occurrence: None)
  Receive Date: 20110331
  Receipt Date: 20110301
  Transmission Date: 20110831
  Serious: Yes (Other)
  Sender: FDA-Public Use
  Company Number: 2011MA002838

PATIENT
  Age: 55 Year
  Sex: Female

DRUGS (4)
  1. PACLITAXEL [Suspect]
     Indication: OVARIAN EPITHELIAL CANCER
     Dosage: 350 MG;QD;IV
     Route: 042
     Dates: start: 20101125
  2. ONDANSETRON [Concomitant]
  3. CARBOPLATIN [Concomitant]
  4. DEXAMETHASONE [Concomitant]

REACTIONS (1)
  - EMBOLISM ARTERIAL [None]
